FAERS Safety Report 9278411 (Version 2)
Quarter: 2013Q4

REPORT INFORMATION
  Report Type: Spontaneous
  Country: GB (occurrence: GB)
  Receive Date: 20130508
  Receipt Date: 20131029
  Transmission Date: 20140711
  Serious: Yes (Other)
  Sender: FDA-Public Use
  Company Number: GB-JNJFOC-20130502852

PATIENT
  Age: 27 Year
  Sex: Male
  Weight: 64 kg

DRUGS (8)
  1. IBUPROFEN [Suspect]
     Route: 048
  2. IBUPROFEN [Suspect]
     Indication: BACK PAIN
     Route: 048
  3. IBUPROFEN [Suspect]
     Route: 065
  4. IBUPROFEN [Suspect]
     Indication: BACK PAIN
     Route: 065
  5. NAPROXEN SODIUM [Suspect]
     Indication: BACK PAIN
     Route: 065
  6. OXYNORM [Concomitant]
     Dates: start: 201209
  7. LAMOTRIGINE [Concomitant]
     Indication: EPILEPSY
     Dates: start: 201209
  8. OXYCONTIN [Concomitant]
     Dates: start: 201209

REACTIONS (5)
  - Epilepsy [Recovered/Resolved]
  - Balance disorder [Recovered/Resolved]
  - Feeling abnormal [Recovered/Resolved]
  - Tremor [Recovered/Resolved]
  - Chills [Recovered/Resolved]
